FAERS Safety Report 11227985 (Version 1)
Quarter: 2015Q2

REPORT INFORMATION
  Report Type: Spontaneous
  Country: JP (occurrence: JP)
  Receive Date: 20150630
  Receipt Date: 20150630
  Transmission Date: 20150821
  Serious: Yes (Hospitalization)
  Sender: FDA-Public Use
  Company Number: JP-NOVOPROD-450333

PATIENT
  Age: 73 Year
  Sex: Male
  Weight: 42 kg

DRUGS (6)
  1. NOVORAPID [Suspect]
     Active Substance: INSULIN ASPART
     Indication: TYPE 1 DIABETES MELLITUS
     Dosage: 9 U, QD (3-3-3 U/DAY)
     Route: 058
     Dates: end: 20150515
  2. HUMALIN [Concomitant]
     Active Substance: INSULIN NOS
     Dosage: (0.1-0.5/HOUR)
     Route: 065
  3. TRESIBA CHU FLEXTOUCH [Suspect]
     Active Substance: INSULIN DEGLUDEC
     Indication: TYPE 1 DIABETES MELLITUS
     Dosage: 3 U, QD
     Route: 058
     Dates: end: 20150515
  4. TRESIBA CHU FLEXTOUCH [Suspect]
     Active Substance: INSULIN DEGLUDEC
     Dosage: 3 U, QD
     Route: 058
     Dates: start: 20150523
  5. TRESIBA CHU FLEXTOUCH [Suspect]
     Active Substance: INSULIN DEGLUDEC
     Dosage: 2 U, QD (AT MORNING)
     Route: 058
     Dates: start: 20150602
  6. THYRADIN S [Concomitant]
     Active Substance: LEVOTHYROXINE SODIUM
     Indication: HYPOTHYROIDISM
     Dosage: 25 MG
     Route: 048

REACTIONS (4)
  - Gastrointestinal necrosis [Recovered/Resolved]
  - Diabetic ketoacidosis [Recovering/Resolving]
  - Asthenia [Unknown]
  - Treatment noncompliance [Unknown]

NARRATIVE: CASE EVENT DATE: 20150515
